FAERS Safety Report 24374895 (Version 1)
Quarter: 2024Q3

REPORT INFORMATION
  Report Type: Report from Study
  Country: ES (occurrence: ES)
  Receive Date: 20240927
  Receipt Date: 20240927
  Transmission Date: 20241017
  Serious: Yes (Life-Threatening, Hospitalization, Other)
  Sender: ALEXION PHARMACEUTICALS
  Company Number: None

PATIENT
  Age: 61 Year

DRUGS (16)
  1. DAPAGLIFLOZIN [Suspect]
     Active Substance: DAPAGLIFLOZIN
     Dosage: 1 COMPRIMIDO/12H
  2. DAPAGLIFLOZIN [Suspect]
     Active Substance: DAPAGLIFLOZIN
     Dosage: 1 COMPRIMIDO/12H
  3. DAPAGLIFLOZIN [Suspect]
     Active Substance: DAPAGLIFLOZIN
     Dosage: 1 COMPRIMIDO/12H
  4. DAPAGLIFLOZIN [Suspect]
     Active Substance: DAPAGLIFLOZIN
     Dosage: 1 COMPRIMIDO/12H
  5. DAPSONE [Suspect]
     Active Substance: DAPSONE
     Dosage: 1 COMPRIMIDO/24H
  6. DAPSONE [Suspect]
     Active Substance: DAPSONE
     Dosage: 1 COMPRIMIDO/24H
  7. DAPSONE [Suspect]
     Active Substance: DAPSONE
     Dosage: 1 COMPRIMIDO/24H
  8. DAPSONE [Suspect]
     Active Substance: DAPSONE
     Dosage: 1 COMPRIMIDO/24H
  9. DEXKETOPROFEN [Suspect]
     Active Substance: DEXKETOPROFEN
     Dosage: 1 COMPRIMIDO/8H
  10. DEXKETOPROFEN [Suspect]
     Active Substance: DEXKETOPROFEN
     Dosage: 1 COMPRIMIDO/8H
  11. DEXKETOPROFEN [Suspect]
     Active Substance: DEXKETOPROFEN
     Dosage: 1 COMPRIMIDO/8H
  12. DEXKETOPROFEN [Suspect]
     Active Substance: DEXKETOPROFEN
     Dosage: 1 COMPRIMIDO/8H
  13. Paracetamol 1.000 mg 20 comprimidos [Concomitant]
     Dosage: 1 COMPRIMIDO/8H
  14. Paracetamol 1.000 mg 20 comprimidos [Concomitant]
     Dosage: 1 COMPRIMIDO/8H
  15. Paracetamol 1.000 mg 20 comprimidos [Concomitant]
     Dosage: 1 COMPRIMIDO/8H
  16. Paracetamol 1.000 mg 20 comprimidos [Concomitant]
     Dosage: 1 COMPRIMIDO/8H

REACTIONS (3)
  - Toxic skin eruption [Recovered/Resolved]
  - Dysphagia [Recovered/Resolved]
  - Oedema peripheral [Recovered/Resolved]
